FAERS Safety Report 5166269-3 (Version None)
Quarter: 2006Q4

REPORT INFORMATION
  Report Type: 
  Country: None (occurrence: None)
  Receive Date: 20061124
  Receipt Date: 20061116
  Transmission Date: 20070319
  Serious: Yes (Other)
  Sender: FDA-Public Use
  Company Number: 2006115078

PATIENT
  Sex: Male

DRUGS (2)
  1. ERAXIS [Suspect]
     Indication: FUNGAL INFECTION
  2. VFEND [Concomitant]

REACTIONS (2)
  - BILIARY TRACT DISORDER [None]
  - HEPATIC ENZYME INCREASED [None]
